APPROVED DRUG PRODUCT: ABILIFY MYCITE KIT
Active Ingredient: ARIPIPRAZOLE
Strength: 10MG
Dosage Form/Route: TABLET;ORAL
Application: N207202 | Product #003
Applicant: OTSUKA PHARMACEUTICAL CO LTD
Approved: Nov 13, 2017 | RLD: Yes | RS: No | Type: DISCN

PATENTS:
Patent 9125939 | Expires: Jul 28, 2026
Patent 8759350 | Expires: Mar 2, 2027
Patent 8956288 | Expires: Jul 6, 2029
Patent 8547248 | Expires: Dec 18, 2030
Patent 8847766 | Expires: Mar 29, 2030
Patent 9444503 | Expires: Nov 19, 2027
Patent 8674825 | Expires: Apr 9, 2029
Patent 8945005 | Expires: Aug 19, 2029
Patent 9268909 | Expires: Oct 15, 2033
Patent 9119554 | Expires: Dec 16, 2028
Patent 8258962 | Expires: Nov 25, 2030
Patent 9060708 | Expires: Mar 5, 2029
Patent 11464423 | Expires: Sep 15, 2030
Patent 9258035 | Expires: Mar 5, 2029
Patent 10441194 | Expires: Jul 26, 2029
Patent 8961412 | Expires: Nov 17, 2030
Patent 10517507 | Expires: Jun 13, 2032
Patent 9941931 | Expires: Nov 4, 2030
Patent 7978064 | Expires: Sep 14, 2026
Patent 9320455 | Expires: Dec 15, 2031
Patent 8114021 | Expires: Jun 21, 2030
Patent 11229378 | Expires: Jul 11, 2031
Patent 8545402 | Expires: Apr 27, 2030
Patent 8718193 | Expires: Dec 5, 2029
Patent 11476952 | Expires: Apr 28, 2026
Patent 9149577 | Expires: Dec 15, 2029
Patent 9433371 | Expires: Sep 15, 2029